FAERS Safety Report 7261267-8 (Version None)
Quarter: 2011Q1

REPORT INFORMATION
  Report Type: 
  Country: None (occurrence: None)
  Receive Date: 20110130
  Receipt Date: 20100917
  Transmission Date: 20110831
  Serious: No
  Sender: FDA-Public Use
  Company Number: US-ABBOTT-10P-163-0672182-00

PATIENT
  Sex: Female

DRUGS (1)
  1. HUMIRA [Suspect]
     Indication: CROHN'S DISEASE
     Dosage: 2ND LOADING DOSE
     Dates: start: 20100915

REACTIONS (3)
  - PHARYNGEAL OEDEMA [None]
  - DYSPNOEA [None]
  - SALIVA ALTERED [None]
